FAERS Safety Report 8456099-9 (Version None)
Quarter: 2012Q2

REPORT INFORMATION
  Report Type: 
  Country: None (occurrence: None)
  Receive Date: 20120621
  Receipt Date: 20120618
  Transmission Date: 20120825
  Serious: Yes (Disabling)
  Sender: FDA-Public Use
  Company Number: PHHY2012LB052286

PATIENT
  Age: 53 Year
  Sex: Female

DRUGS (4)
  1. CALCIUM CARBONATE [Concomitant]
     Dosage: 1 DF, UNK
     Route: 048
     Dates: start: 20090101
  2. IMATINIB MESYLATE [Suspect]
     Indication: CHRONIC MYELOID LEUKAEMIA
     Dosage: 300 MG, DAILY
     Route: 048
     Dates: start: 20080321
  3. MG B6 [Concomitant]
     Dosage: 1 DF, 8 H
     Route: 048
     Dates: start: 20080101
  4. BIOSELENIUM [Concomitant]
     Dosage: 1 DF, UNK
     Route: 048
     Dates: start: 20100301

REACTIONS (2)
  - FATIGUE [None]
  - HIP FRACTURE [None]
